FAERS Safety Report 8739556 (Version 2)
Quarter: 2012Q4

REPORT INFORMATION
  Report Type: 
  Country: JP (occurrence: JP)
  Receive Date: 20120823
  Receipt Date: 20120828
  Transmission Date: 20130627
  Serious: Yes (Hospitalization)
  Sender: FDA-Public Use
  Company Number: JP-ROCHE-1103435

PATIENT
  Age: 75 None
  Sex: Female
  Weight: 47 kg

DRUGS (4)
  1. PEGASYS [Suspect]
     Indication: HEPATITIS C
     Route: 058
     Dates: start: 20120502, end: 20120806
  2. COPEGUS [Suspect]
     Indication: HEPATITIS C
     Route: 048
     Dates: start: 20120502, end: 20120708
  3. COPEGUS [Suspect]
     Indication: HEPATITIS C
     Route: 048
     Dates: start: 20120709, end: 20120806
  4. EDIROL [Concomitant]
     Indication: HEPATITIS C
     Route: 048
     Dates: start: 20120502

REACTIONS (1)
  - Stomatitis [Recovering/Resolving]
